FAERS Safety Report 8297819-6 (Version None)
Quarter: 2012Q2

REPORT INFORMATION
  Report Type: 
  Country: None (occurrence: None)
  Receive Date: 20120419
  Receipt Date: 20120412
  Transmission Date: 20120825
  Serious: Yes (Other)
  Sender: FDA-Public Use
  Company Number: US-BAYER-2011-093666

PATIENT
  Age: 27 Year
  Sex: Female
  Weight: 77 kg

DRUGS (3)
  1. YAZ [Suspect]
     Dosage: UNK
     Dates: start: 20030901, end: 20051001
  2. YASMIN [Suspect]
     Dosage: UNK
     Dates: start: 20030901, end: 20051001
  3. MULTI-VITAMINS [Concomitant]
     Dosage: UNK
     Dates: start: 20060524

REACTIONS (6)
  - CHOLECYSTITIS CHRONIC [None]
  - INJURY [None]
  - PAIN [None]
  - GALLBLADDER DISORDER [None]
  - ANHEDONIA [None]
  - ANXIETY [None]
